FAERS Safety Report 5101652-3 (Version None)
Quarter: 2006Q3

REPORT INFORMATION
  Report Type: 
  Country: None (occurrence: None)
  Receive Date: 20060731
  Receipt Date: 20060619
  Transmission Date: 20061208
  Serious: No
  Sender: FDA-Public Use
  Company Number: 2006PV015969

PATIENT
  Age: 48 Year
  Sex: Male
  Weight: 160.1197 kg

DRUGS (1)
  1. BYETTA [Suspect]
     Indication: WEIGHT DECREASED
     Dosage: 5 MCG;BID;SC
     Route: 058
     Dates: start: 20060501, end: 20060601

REACTIONS (2)
  - INJECTION SITE HAEMORRHAGE [None]
  - WEIGHT DECREASED [None]
